FAERS Safety Report 11164077 (Version 1)
Quarter: 2015Q2

REPORT INFORMATION
  Report Type: Spontaneous
  Country: US (occurrence: US)
  Receive Date: 20150604
  Receipt Date: 20150604
  Transmission Date: 20150821
  Serious: Yes (Other)
  Sender: FDA-Public Use
  Company Number: US-SA-2014SA074628

PATIENT
  Sex: Male

DRUGS (2)
  1. GLYBURIDE. [Suspect]
     Active Substance: GLYBURIDE
     Indication: PRODUCT USED FOR UNKNOWN INDICATION
     Route: 065
  2. LANTUS [Suspect]
     Active Substance: INSULIN GLARGINE
     Indication: PRODUCT USED FOR UNKNOWN INDICATION
     Dosage: DOSE:10 UNIT(S)
     Route: 058

REACTIONS (5)
  - Visual impairment [Unknown]
  - Hypoglycaemia [Unknown]
  - Glycosylated haemoglobin increased [Unknown]
  - Diabetic vascular disorder [Unknown]
  - Hyperglycaemia [Unknown]
